FAERS Safety Report 8409537-1 (Version None)
Quarter: 2012Q2

REPORT INFORMATION
  Report Type: 
  Country: None (occurrence: None)
  Receive Date: 20120529
  Receipt Date: 20040802
  Transmission Date: 20120825
  Serious: Yes (Other)
  Sender: FDA-Public Use
  Company Number: JP-2012-12761

PATIENT

DRUGS (2)
  1. PLETAL [Suspect]
  2. TICLOPIDINE HCL [Suspect]

REACTIONS (3)
  - CHOLECYSTITIS ACUTE [None]
  - GALLBLADDER PERFORATION [None]
  - CHOLELITHIASIS [None]
